FAERS Safety Report 15239580 (Version 3)
Quarter: 2018Q3

REPORT INFORMATION
  Report Type: Spontaneous
  Country: JP (occurrence: JP)
  Receive Date: 20180803
  Receipt Date: 20180831
  Transmission Date: 20181010
  Serious: No
  Sender: FDA-Public Use
  Company Number: JP-UCBSA-2018034191

PATIENT
  Age: 9 Decade
  Sex: Female

DRUGS (1)
  1. NEUPRO [Suspect]
     Active Substance: ROTIGOTINE
     Indication: RESTLESS LEGS SYNDROME
     Dosage: 0.5 DF, ONCE DAILY (QD)
     Route: 062
     Dates: end: 201808

REACTIONS (2)
  - Off label use [Unknown]
  - Investigation [Unknown]
